FAERS Safety Report 15847145 (Version 1)
Quarter: 2019Q1

REPORT INFORMATION
  Report Type: Spontaneous
  Country: US (occurrence: US)
  Receive Date: 20190121
  Receipt Date: 20190121
  Transmission Date: 20190417
  Serious: Yes (Hospitalization)
  Sender: FDA-Public Use
  Company Number: US-APOTEX-2019AP006571

PATIENT
  Age: 52 Year
  Sex: Female

DRUGS (5)
  1. THIAMINE. [Concomitant]
     Active Substance: THIAMINE
     Indication: PRODUCT USED FOR UNKNOWN INDICATION
     Dosage: 100 MG, UNK (PER DAY)
     Route: 065
  2. TRAMADOL. [Suspect]
     Active Substance: TRAMADOL
     Indication: COCCYDYNIA
     Dosage: 50 MG, TID (EVERY EIGHT HOURS) AS NEEDED, MAXIMUM 100 MG DAILY
     Route: 065
  3. DESVENLAFAXINE                     /05742202/ [Concomitant]
     Active Substance: DESVENLAFAXINE SUCCINATE
     Indication: GENERALISED ANXIETY DISORDER
     Dosage: 50 MG, UNK (PER DAY)
     Route: 065
  4. HYDROXYZINE [Concomitant]
     Active Substance: HYDROXYZINE HYDROCHLORIDE
     Indication: ANXIETY
     Dosage: 25 MG, UNK (AS NEEDED)
     Route: 065
  5. FOLIC ACID. [Concomitant]
     Active Substance: FOLIC ACID
     Indication: PRODUCT USED FOR UNKNOWN INDICATION
     Dosage: 1 MG, UNK (PER DAY)
     Route: 065

REACTIONS (1)
  - Hyponatraemia [Recovered/Resolved]
